FAERS Safety Report 20391150 (Version 2)
Quarter: 2022Q2

REPORT INFORMATION
  Report Type: Spontaneous
  Country: US (occurrence: US)
  Receive Date: 20220128
  Receipt Date: 20220425
  Transmission Date: 20220721
  Serious: Yes (Other)
  Sender: FDA-Public Use
  Company Number: US-PFIZER INC-202101162571

PATIENT
  Age: 83 Year
  Sex: Female
  Weight: 61.224 kg

DRUGS (3)
  1. SUTENT [Suspect]
     Active Substance: SUNITINIB MALATE
     Indication: Leukaemia
     Dosage: 50 MG, 1X/DAY
     Route: 048
     Dates: start: 20210909
  2. SUTENT [Suspect]
     Active Substance: SUNITINIB MALATE
     Dosage: 50 MG FOR 28 DAYS
     Route: 048
     Dates: start: 202111
  3. SUTENT [Suspect]
     Active Substance: SUNITINIB MALATE
     Dosage: 50 MG, DAILY (TAKE 1 CAPSULE DAILY)
     Route: 048

REACTIONS (3)
  - Second primary malignancy [Unknown]
  - Pancreatic carcinoma [Unknown]
  - Off label use [Unknown]
